FAERS Safety Report 6920822-2 (Version None)
Quarter: 2010Q3

REPORT INFORMATION
  Report Type: 
  Country: None (occurrence: None)
  Receive Date: 20100804
  Receipt Date: 20091214
  Transmission Date: 20110219
  Serious: No
  Sender: FDA-Public Use
  Company Number: 2009-5102

PATIENT
  Age: 56 Year
  Sex: Male
  Weight: 95.2 kg

DRUGS (17)
  1. SOMATULINE DEPOT [Suspect]
     Indication: ACROMEGALY
     Dosage: (90 MG, 1 IN 28 D), INTRAMUSCULAR
     Route: 030
     Dates: start: 20091202
  2. LEVOTHYROXINE SODIUM [Suspect]
     Indication: PRODUCT USED FOR UNKNOWN INDICATION
     Dosage: 125 G (NOT REPORTED, NOT REPORTED), ORAL 100 G (NOT REPORTED, NOT REPORTED), ORAL
     Route: 048
     Dates: start: 20091202, end: 20091215
  3. LEVOTHYROXINE SODIUM [Suspect]
     Indication: PRODUCT USED FOR UNKNOWN INDICATION
     Dosage: 125 G (NOT REPORTED, NOT REPORTED), ORAL 100 G (NOT REPORTED, NOT REPORTED), ORAL
     Route: 048
     Dates: start: 20091215
  4. MORPHINE [Concomitant]
  5. RELAPHEN (NABUMETONE) [Concomitant]
  6. MEDICATION FOR DEPRESSION (ANTIDEPRESSANTS) [Concomitant]
  7. ATENOLOL [Concomitant]
  8. OMEPRAZOLE [Concomitant]
  9. FLUVOXAMINE (FLOVOXAMINE) [Concomitant]
  10. RISPERDAL [Concomitant]
  11. GABAPENTIN [Concomitant]
  12. MULTIVITAMIN (MULTIVITAMIN) [Concomitant]
  13. FISH OIL (FISH OIL) [Concomitant]
  14. VITAMIN D [Concomitant]
  15. ASPIRIN [Concomitant]
  16. PRESERVISION (OCUVITE) [Concomitant]
  17. AMITRIPTYLINE HYDROCHLORIDE [Concomitant]

REACTIONS (3)
  - ANAEMIA [None]
  - HYPOGLYCAEMIA [None]
  - OEDEMA PERIPHERAL [None]
